FAERS Safety Report 5488018-1 (Version None)
Quarter: 2007Q4

REPORT INFORMATION
  Report Type: 
  Country: None (occurrence: None)
  Receive Date: 20071005
  Receipt Date: 20070816
  Transmission Date: 20080405
  Serious: No
  Sender: FDA-Public Use
  Company Number: PHEH2007US10207

PATIENT
  Age: 70 Year
  Sex: Female
  Weight: 93.9 kg

DRUGS (3)
  1. TEKTURNA [Suspect]
     Indication: HYPERTENSION
     Dosage: 150 MG, QD, ORAL
     Route: 048
     Dates: start: 20070620, end: 20070715
  2. AMLODIPINE [Concomitant]
  3. HYDROCHLOROTHIAZIDE [Concomitant]

REACTIONS (6)
  - CAPILLARY DISORDER [None]
  - CHEST DISCOMFORT [None]
  - COUGH [None]
  - DYSPEPSIA [None]
  - PARAESTHESIA [None]
  - SWELLING FACE [None]
